FAERS Safety Report 13423416 (Version 1)
Quarter: 2017Q2

REPORT INFORMATION
  Report Type: Spontaneous
  Country: KR (occurrence: KR)
  Receive Date: 20170410
  Receipt Date: 20170410
  Transmission Date: 20170830
  Serious: Yes (Hospitalization, Other)
  Sender: FDA-Public Use
  Company Number: KR-009507513-1704KOR001081

PATIENT
  Sex: Female

DRUGS (1)
  1. IMPLANON [Suspect]
     Active Substance: ETONOGESTREL
     Dosage: 1 IMPLANT, UNK
     Dates: start: 20170303, end: 20170404

REACTIONS (10)
  - Implant site nerve injury [Unknown]
  - Dyskinesia [Not Recovered/Not Resolved]
  - Device difficult to use [Recovered/Resolved]
  - Complication of device removal [Recovered/Resolved]
  - General anaesthesia [Unknown]
  - Hypoaesthesia [Unknown]
  - Surgery [Unknown]
  - Complication associated with device [Recovered/Resolved]
  - Device deployment issue [Recovered/Resolved]
  - Device deployment issue [Recovered/Resolved]

NARRATIVE: CASE EVENT DATE: 2017
